FAERS Safety Report 15647907 (Version 1)
Quarter: 2018Q4

REPORT INFORMATION
  Report Type: Spontaneous
  Country: TR (occurrence: TR)
  Receive Date: 20181122
  Receipt Date: 20181122
  Transmission Date: 20190205
  Serious: Yes (Other)
  Sender: FDA-Public Use
  Company Number: TR-MACLEODS PHARMACEUTICALS US LTD-MAC2018018756

PATIENT

DRUGS (4)
  1. PRAMIPEXOLE. [Suspect]
     Active Substance: PRAMIPEXOLE
     Indication: PARKINSON^S DISEASE
     Dosage: 1.125 MILLIGRAM, QD DURING ONSET OF PREGNANCY
     Route: 064
  2. PRAMIPEXOLE. [Suspect]
     Active Substance: PRAMIPEXOLE
     Dosage: 1.125  MILLIGRAM, QD DURING FIRST TRIMESTER
     Route: 064
  3. RASAGILINE. [Suspect]
     Active Substance: RASAGILINE
     Indication: PARKINSON^S DISEASE
     Dosage: 1 MILLIGRAM, QD, DURING ONSET OF PREGNANCY
     Route: 064
  4. RASAGILINE. [Suspect]
     Active Substance: RASAGILINE
     Dosage: 1 MILLIGRAM, QD, (0-5 WEEKS) DURING FIRST TRIMESTER
     Route: 064

REACTIONS (2)
  - Trisomy 21 [Unknown]
  - Foetal exposure during pregnancy [Unknown]
